FAERS Safety Report 4995022-6 (Version None)
Quarter: 2006Q2

REPORT INFORMATION
  Report Type: 
  Country: None (occurrence: None)
  Receive Date: 20060508
  Receipt Date: 20060203
  Transmission Date: 20061013
  Serious: Yes (Other)
  Sender: FDA-Public Use
  Company Number: ES-GLAXOSMITHKLINE-B0409172A

PATIENT
  Age: 70 Year
  Sex: Male

DRUGS (1)
  1. DUTASTERIDE [Suspect]
     Indication: BENIGN PROSTATIC HYPERPLASIA
     Route: 048
     Dates: start: 20050901, end: 20050926

REACTIONS (3)
  - FATIGUE [None]
  - LEUKOPENIA [None]
  - MALAISE [None]
